FAERS Safety Report 9762834 (Version 1)
Quarter: 2013Q4

REPORT INFORMATION
  Report Type: Spontaneous
  Country: TR (occurrence: TR)
  Receive Date: 20131216
  Receipt Date: 20131216
  Transmission Date: 20140711
  Serious: Yes (Death)
  Sender: FDA-Public Use
  Company Number: TR-ASTRAZENECA-2013SE91012

PATIENT
  Age: 65 Year
  Sex: Male

DRUGS (3)
  1. BRILINTA [Suspect]
     Indication: CARDIOVASCULAR EVENT PROPHYLAXIS
     Route: 048
     Dates: start: 201311
  2. BETA BLOCKER [Concomitant]
     Indication: HYPERTENSION
  3. CORALAN [Concomitant]
     Indication: CARDIAC FAILURE CHRONIC

REACTIONS (4)
  - Pulmonary haematoma [Fatal]
  - Respiratory depression [Fatal]
  - Bradycardia [Recovered/Resolved]
  - Tachycardia [Unknown]
